FAERS Safety Report 8381753 (Version 2)
Quarter: 2015Q2

REPORT INFORMATION
  Report Type: Report from Study
  Country: US (occurrence: US)
  Receive Date: 20120201
  Receipt Date: 20150619
  Transmission Date: 20150821
  Serious: Yes (Death)
  Sender: FDA-Public Use
  Company Number: US-ROCHE-1035030

PATIENT
  Sex: Male
  Weight: 72.2 kg

DRUGS (15)
  1. AVASTIN [Suspect]
     Active Substance: BEVACIZUMAB
     Indication: MALIGNANT NEOPLASM OF PLEURA
     Route: 042
     Dates: start: 20071210
  2. ATIVAN [Concomitant]
     Active Substance: LORAZEPAM
     Indication: MALIGNANT NEOPLASM OF PLEURA
     Route: 042
     Dates: start: 20080211
  3. ERBITUX [Concomitant]
     Active Substance: CETUXIMAB
     Route: 042
     Dates: start: 20071210
  4. TAXOL [Concomitant]
     Active Substance: PACLITAXEL
     Route: 042
     Dates: start: 20080114
  5. ERBITUX [Concomitant]
     Active Substance: CETUXIMAB
     Route: 042
     Dates: start: 20080211
  6. CARBOPLATIN. [Concomitant]
     Active Substance: CARBOPLATIN
     Indication: MALIGNANT NEOPLASM OF PLEURA
     Route: 042
     Dates: start: 20071210
  7. CARBOPLATIN. [Concomitant]
     Active Substance: CARBOPLATIN
     Route: 042
     Dates: start: 20080114
  8. ERBITUX [Concomitant]
     Active Substance: CETUXIMAB
     Indication: MALIGNANT NEOPLASM OF PLEURA
     Route: 042
     Dates: start: 20071210
  9. BENADRYL [Concomitant]
     Active Substance: DIPHENHYDRAMINE HYDROCHLORIDE
     Indication: MALIGNANT NEOPLASM OF PLEURA
     Route: 042
     Dates: start: 20071224
  10. TAXOL [Concomitant]
     Active Substance: PACLITAXEL
     Indication: MALIGNANT NEOPLASM OF PLEURA
     Dosage: FREQUENCY 1 ?FREQUENCY TIME: 3
     Route: 042
     Dates: start: 20071210
  11. ERBITUX [Concomitant]
     Active Substance: CETUXIMAB
     Route: 015
     Dates: start: 20080114
  12. AVASTIN [Suspect]
     Active Substance: BEVACIZUMAB
     Route: 042
     Dates: start: 20080211
  13. SOLU-MEDROL [Concomitant]
     Active Substance: METHYLPREDNISOLONE SODIUM SUCCINATE
     Indication: MALIGNANT NEOPLASM OF PLEURA
     Route: 042
     Dates: start: 20071224
  14. PEPCID [Concomitant]
     Active Substance: FAMOTIDINE
     Indication: MALIGNANT NEOPLASM OF PLEURA
     Route: 042
     Dates: start: 20080211
  15. ZANTAC [Concomitant]
     Active Substance: RANITIDINE HYDROCHLORIDE
     Indication: MALIGNANT NEOPLASM OF PLEURA
     Route: 065
     Dates: start: 20071224

REACTIONS (14)
  - Paraesthesia [Unknown]
  - Cough [Unknown]
  - Constipation [Unknown]
  - Death [Fatal]
  - Epistaxis [Recovering/Resolving]
  - Anxiety [Unknown]
  - Rash [Recovering/Resolving]
  - Decreased appetite [Unknown]
  - Alopecia [Unknown]
  - Off label use [Unknown]
  - Dyspnoea [Unknown]
  - Fatigue [Unknown]
  - Nausea [Unknown]
  - Hot flush [Unknown]
